FAERS Safety Report 5267033-7 (Version None)
Quarter: 2007Q1

REPORT INFORMATION
  Report Type: 
  Country: None (occurrence: None)
  Receive Date: 20070316
  Receipt Date: 20070306
  Transmission Date: 20070707
  Serious: Yes (Hospitalization)
  Sender: FDA-Public Use
  Company Number: US-JNJFOC-20070301383

PATIENT
  Age: 51 Year
  Sex: Male

DRUGS (24)
  1. PREZISTA [Suspect]
     Indication: HIV INFECTION
     Route: 048
  2. MK0518 [Suspect]
     Indication: HIV INFECTION
     Route: 048
  3. RITONAVIR [Suspect]
     Indication: HIV INFECTION
     Route: 048
  4. TRUVADA [Suspect]
     Indication: HIV INFECTION
     Route: 048
  5. ROXICET [Concomitant]
  6. ACYCLOVIR [Concomitant]
     Route: 065
  7. CLARITHROMYCIN [Concomitant]
     Route: 065
  8. ALENDRONATE SODIUM [Concomitant]
     Route: 065
  9. DICLOXACILLIN [Concomitant]
     Route: 065
  10. DIPHENHYDRAMINE HCL [Concomitant]
     Route: 065
  11. ENOXAPARIN SODIUM [Concomitant]
     Route: 065
  12. FEXOFENADINE HYDROCHLORIDE [Concomitant]
     Route: 065
  13. FLUCONAZOLE [Concomitant]
     Route: 065
  14. GABAPENTIN [Concomitant]
     Route: 065
  15. HYDROCORTISONE ACETATE [Concomitant]
     Route: 065
  16. KETOCONAZOLE [Concomitant]
     Route: 065
  17. MIRTAZAPINE [Concomitant]
     Route: 065
  18. PENCICLOVIR [Concomitant]
     Route: 065
  19. SULFAMETHOXAZOLE + TRIMETHOPRIM [Concomitant]
     Route: 065
  20. VITAMIN D [Concomitant]
     Route: 065
  21. VORICONAZOLE [Concomitant]
     Route: 065
  22. WARFARIN SODIUM [Concomitant]
     Route: 065
  23. FOLIC ACID [Concomitant]
     Route: 065
  24. METHOTREXATE SODIUM [Concomitant]
     Route: 065

REACTIONS (2)
  - NERVOUS SYSTEM DISORDER [None]
  - SENSATION OF HEAVINESS [None]
